FAERS Safety Report 5388042-3 (Version None)
Quarter: 2007Q3

REPORT INFORMATION
  Report Type: 
  Country: None (occurrence: None)
  Receive Date: 20070716
  Receipt Date: 20070705
  Transmission Date: 20080115
  Serious: Yes (Hospitalization)
  Sender: FDA-Public Use
  Company Number: US-KINGPHARMUSA00001-K200700854

PATIENT

DRUGS (1)
  1. SONATA [Suspect]
     Dosage: 50 CAPSULES (250 MG)
     Route: 048
     Dates: start: 20070702, end: 20070702

REACTIONS (3)
  - INTENTIONAL OVERDOSE [None]
  - NO ADVERSE DRUG REACTION [None]
  - SUICIDE ATTEMPT [None]
